FAERS Safety Report 23275315 (Version 3)
Quarter: 2024Q1

REPORT INFORMATION
  Report Type: Spontaneous
  Country: US (occurrence: US)
  Receive Date: 20231208
  Receipt Date: 20240229
  Transmission Date: 20240410
  Serious: Yes (Disabling, Other)
  Sender: FDA-Public Use
  Company Number: US-REGENERON PHARMACEUTICALS, INC.-2023-147115

PATIENT

DRUGS (1)
  1. EYLEA [Suspect]
     Active Substance: AFLIBERCEPT
     Indication: Product used for unknown indication
     Dosage: UNK, FORMULATION: UNKNOWN

REACTIONS (4)
  - Blindness [Unknown]
  - Eye infection [Unknown]
  - Eye haemorrhage [Unknown]
  - Ocular hyperaemia [Unknown]
